FAERS Safety Report 5018253-8 (Version None)
Quarter: 2006Q2

REPORT INFORMATION
  Report Type: 
  Country: None (occurrence: None)
  Receive Date: 20060530
  Receipt Date: 20060517
  Transmission Date: 20061013
  Serious: Yes (Hospitalization)
  Sender: FDA-Public Use
  Company Number: 2006065521

PATIENT
  Age: 24 Year
  Sex: Male

DRUGS (5)
  1. ANSATIPINE (RIFABUTIN) [Suspect]
     Indication: ILL-DEFINED DISORDER
     Dosage: 150 MG, ORAL
     Route: 048
     Dates: start: 20060407, end: 20060415
  2. RIMIFON [Suspect]
     Indication: ILL-DEFINED DISORDER
     Dosage: 300 MG, ORAL
     Route: 048
     Dates: start: 20060407, end: 20060415
  3. MYAMBUTOL [Suspect]
     Indication: ILL-DEFINED DISORDER
     Dosage: 1200 MG , ORAL
     Route: 048
     Dates: start: 20060407, end: 20060415
  4. PIRILENE          (PYRAZINAMIDE) [Suspect]
     Indication: ILL-DEFINED DISORDER
     Dosage: 2 GRAM , ORAL
     Route: 048
     Dates: start: 20060407, end: 20060415
  5. CLARITHROMYCIN [Suspect]
     Indication: ILL-DEFINED DISORDER
     Dosage: 2 GRAM , ORAL
     Route: 048
     Dates: start: 20060407, end: 20060415

REACTIONS (3)
  - LYMPHOPENIA [None]
  - NEUTROPENIA [None]
  - THROMBOCYTOPENIA [None]
